FAERS Safety Report 10097339 (Version 2)
Quarter: 2014Q2

REPORT INFORMATION
  Report Type: Report from Study
  Country: DE (occurrence: DE)
  Receive Date: 20140423
  Receipt Date: 20140507
  Transmission Date: 20141212
  Serious: Yes (Hospitalization)
  Sender: FDA-Public Use
  Company Number: DE-AMGEN-DEUCT2014027969

PATIENT
  Age: 72 Year
  Sex: Female
  Weight: 84 kg

DRUGS (3)
  1. PANITUMUMAB [Suspect]
     Indication: OVARIAN CANCER RECURRENT
     Dosage: 9 MG/KG, UNK
     Route: 042
     Dates: start: 20140303
  2. GEMCITABIN [Concomitant]
     Indication: OVARIAN CANCER RECURRENT
     Dosage: 1000 MG/M2, UNK
     Route: 042
     Dates: start: 20140303
  3. CARBOPLATIN [Concomitant]
     Indication: OVARIAN CANCER RECURRENT
     Dosage: 4 AUC
     Route: 042
     Dates: start: 20140303

REACTIONS (1)
  - Anaemia [Recovered/Resolved]
